FAERS Safety Report 21841306 (Version 2)
Quarter: 2023Q1

REPORT INFORMATION
  Report Type: Spontaneous
  Country: HU (occurrence: HU)
  Receive Date: 20230110
  Receipt Date: 20230316
  Transmission Date: 20230417
  Serious: Yes (Other)
  Sender: FDA-Public Use
  Company Number: HU-002147023-NVSC2023HU002047

PATIENT
  Age: 33 Year
  Sex: Female

DRUGS (8)
  1. FEMARA [Suspect]
     Active Substance: LETROZOLE
     Indication: Ovulation induction
     Dosage: 2.5 MG, BID (BETWEEN 2-6 DAYS OF CYCLE)
     Route: 048
  2. FOLLITROPIN\LUTROPIN ALFA [Suspect]
     Active Substance: FOLLITROPIN\LUTROPIN ALFA
     Indication: Ovulation induction
     Dosage: UNK, (2, 4 AND 6 OF THE CYCLE)
     Route: 058
  3. FOLLITROPIN\LUTROPIN ALFA [Suspect]
     Active Substance: FOLLITROPIN\LUTROPIN ALFA
     Dosage: UNK, (1 VIAL ON DAY 10, 11, 12)
     Route: 058
  4. CETROTIDE [Suspect]
     Active Substance: CETRORELIX ACETATE
     Indication: Ovulation induction
     Dosage: UNK, (ON DAY 11, 12 OF CYCLE)
     Route: 058
  5. TRIPTORELIN ACETATE [Suspect]
     Active Substance: TRIPTORELIN ACETATE
     Indication: Ovulation induction
     Dosage: UNK, (2 AMPOULES)
     Route: 058
  6. BROMOCRIPTINE MESYLATE [Suspect]
     Active Substance: BROMOCRIPTINE MESYLATE
     Indication: Hyperprolactinaemia
     Dosage: 1 DOSAGE FORM, QD (IN THE EVENING)
     Route: 048
  7. CRINONE [Suspect]
     Active Substance: PROGESTERONE
     Indication: Product used for unknown indication
     Dosage: UNK, (IN MORNING)
     Route: 067
  8. UTROGESTAN [Suspect]
     Active Substance: PROGESTERONE
     Indication: Product used for unknown indication
     Dosage: 3 DOSAGE FORM, QD (IN EVENING)
     Route: 067

REACTIONS (3)
  - Premature delivery [Unknown]
  - Maternal exposure before pregnancy [Unknown]
  - Product use in unapproved indication [Unknown]

NARRATIVE: CASE EVENT DATE: 20171001
